FAERS Safety Report 5335539-8 (Version None)
Quarter: 2007Q2

REPORT INFORMATION
  Report Type: 
  Country: None (occurrence: None)
  Receive Date: 20070522
  Receipt Date: 20070511
  Transmission Date: 20071010
  Serious: Yes (Hospitalization)
  Sender: FDA-Public Use
  Company Number: 163-21880-07031319

PATIENT
  Sex: Female

DRUGS (1)
  1. REVLIMID [Suspect]
     Indication: MYELODYSPLASTIC SYNDROME
     Dosage: 5MG, 1 IN 1 D, ORAL
     Route: 048
     Dates: start: 20061208, end: 20070131

REACTIONS (6)
  - CONDITION AGGRAVATED [None]
  - FEBRILE NEUTROPENIA [None]
  - LYME DISEASE [None]
  - PLATELET COUNT DECREASED [None]
  - TRANSPLANT [None]
  - VIRAL INFECTION [None]
